FAERS Safety Report 10019026 (Version 4)
Quarter: 2014Q2

REPORT INFORMATION
  Report Type: Spontaneous
  Country: US (occurrence: US)
  Receive Date: 20140318
  Receipt Date: 20140527
  Transmission Date: 20141212
  Serious: No
  Sender: FDA-Public Use
  Company Number: US-JNJFOC-20140302878

PATIENT
  Age: 31 Year
  Sex: Female
  Weight: 99.79 kg

DRUGS (2)
  1. INVEGA SUSTENNA [Suspect]
     Indication: PSYCHOTIC DISORDER
     Route: 030
     Dates: start: 201402
  2. INVEGA SUSTENNA [Suspect]
     Indication: PSYCHOTIC DISORDER
     Route: 030
     Dates: end: 2013

REACTIONS (2)
  - Disturbance in attention [Unknown]
  - Hypersomnia [Unknown]
